FAERS Safety Report 4570026-6 (Version None)
Quarter: 2005Q1

REPORT INFORMATION
  Report Type: 
  Country: None (occurrence: None)
  Receive Date: 20050125
  Receipt Date: 20050125
  Transmission Date: 20050727
  Serious: Yes (Death, Life-Threatening)
  Sender: FDA-Public Use
  Company Number: None

PATIENT
  Age: 62 Year
  Sex: Female
  Weight: 75.7507 kg

DRUGS (3)
  1. OMNICEF [Suspect]
     Indication: SINUSITIS
     Dosage: 300 MG 2 PO QD
     Route: 048
     Dates: start: 20041116
  2. TIGAN SUPP [Concomitant]
  3. CIPRO [Concomitant]

REACTIONS (1)
  - RENAL FAILURE ACUTE [None]
